FAERS Safety Report 12470121 (Version 3)
Quarter: 2016Q3

REPORT INFORMATION
  Report Type: Spontaneous
  Country: NL (occurrence: NL)
  Receive Date: 20160616
  Receipt Date: 20160923
  Transmission Date: 20161109
  Serious: Yes (Other)
  Sender: FDA-Public Use
  Company Number: NL-ROCHE-1775253

PATIENT
  Sex: Female

DRUGS (3)
  1. ISOPTIN [Concomitant]
     Active Substance: VERAPAMIL HYDROCHLORIDE
     Indication: PRODUCT USED FOR UNKNOWN INDICATION
     Route: 065
  2. LUCENTIS [Suspect]
     Active Substance: RANIBIZUMAB
     Dosage: 1 DF, QMO
     Route: 065
     Dates: start: 2014
  3. LUCENTIS [Suspect]
     Active Substance: RANIBIZUMAB
     Indication: NEOVASCULAR AGE-RELATED MACULAR DEGENERATION
     Route: 065
     Dates: start: 2013

REACTIONS (14)
  - Gastrointestinal disorder [Unknown]
  - Visual acuity reduced [Unknown]
  - Syringe issue [Unknown]
  - Intraocular melanoma [Unknown]
  - Vision blurred [Unknown]
  - Abdominal pain [Unknown]
  - Gastrointestinal disorder [Recovered/Resolved]
  - Cyst [Unknown]
  - Lacrimation increased [Unknown]
  - Retinal disorder [Unknown]
  - Eye disorder [Unknown]
  - Glaucoma [Unknown]
  - Macular degeneration [Unknown]
  - Inappropriate schedule of drug administration [Unknown]
